FAERS Safety Report 23600297 (Version 1)
Quarter: 2024Q1

REPORT INFORMATION
  Report Type: Spontaneous
  Country: US (occurrence: US)
  Receive Date: 20240306
  Receipt Date: 20240306
  Transmission Date: 20240409
  Serious: No
  Sender: FDA-Public Use
  Company Number: US-HIKMA PHARMACEUTICALS USA INC.-US-H14001-23-67776

PATIENT

DRUGS (1)
  1. LISDEXAMFETAMINE [Suspect]
     Active Substance: LISDEXAMFETAMINE
     Indication: Attention deficit hyperactivity disorder
     Dosage: UNKNOWN
     Route: 065
     Dates: start: 20231001, end: 20231031

REACTIONS (5)
  - Pruritus [Unknown]
  - Headache [Unknown]
  - Chest pain [Unknown]
  - Drug ineffective [Unknown]
  - Anxiety [Unknown]
